FAERS Safety Report 8840064 (Version 2)
Quarter: 2012Q4

REPORT INFORMATION
  Report Type: 
  Country: US (occurrence: US)
  Receive Date: 20121015
  Receipt Date: 20121029
  Transmission Date: 20130627
  Serious: No
  Sender: FDA-Public Use
  Company Number: US-PFIZER INC-2012253937

PATIENT
  Sex: Male

DRUGS (1)
  1. LYRICA [Suspect]
     Indication: DIABETIC PERIPHERAL NEUROPATHIC PAIN
     Dosage: UNK
     Dates: start: 2012, end: 2012

REACTIONS (2)
  - Drug ineffective [Unknown]
  - Muscle spasms [Unknown]
